FAERS Safety Report 13024428 (Version 1)
Quarter: 2016Q4

REPORT INFORMATION
  Report Type: Spontaneous
  Country: SK (occurrence: SK)
  Receive Date: 20161213
  Receipt Date: 20161213
  Transmission Date: 20170207
  Serious: Yes (Death)
  Sender: FDA-Public Use
  Company Number: SK-BAXALTA-2016BLT009176

PATIENT
  Sex: Female
  Weight: 30 kg

DRUGS (1)
  1. HYQVIA [Suspect]
     Active Substance: HUMAN IMMUNOGLOBULIN G\HYALURONIDASE RECOMBINANT HUMAN
     Indication: HYPOGAMMAGLOBULINAEMIA
     Dosage: 15 G, 1X A MONTH
     Route: 058
     Dates: start: 20160509

REACTIONS (1)
  - Death [Fatal]

NARRATIVE: CASE EVENT DATE: 20161105
